FAERS Safety Report 24840877 (Version 1)
Quarter: 2025Q1

REPORT INFORMATION
  Report Type: Spontaneous
  Country: US (occurrence: US)
  Receive Date: 20250114
  Receipt Date: 20250114
  Transmission Date: 20250409
  Serious: No
  Sender: BAYER HEALTHCARE LLC
  Company Number: US-BAYER-2025A004625

PATIENT
  Age: 83 Year
  Sex: Male

DRUGS (1)
  1. ASTEPRO [Suspect]
     Active Substance: AZELASTINE HYDROCHLORIDE
     Dosage: 3 DF, QD
     Route: 045
     Dates: start: 20250109

REACTIONS (2)
  - Cough [Unknown]
  - Expired product administered [Unknown]

NARRATIVE: CASE EVENT DATE: 20250109
